FAERS Safety Report 9885257 (Version 2)
Quarter: 2014Q1

REPORT INFORMATION
  Report Type: Spontaneous
  Country: US (occurrence: US)
  Receive Date: 20140210
  Receipt Date: 20140220
  Transmission Date: 20141002
  Serious: Yes (Other)
  Sender: FDA-Public Use
  Company Number: US-PFIZER INC-2014034017

PATIENT
  Age: 77 Year
  Sex: Female
  Weight: 58.96 kg

DRUGS (1)
  1. TOVIAZ [Suspect]
     Indication: HYPERTONIC BLADDER
     Dosage: UNK, SINGLE
     Route: 048

REACTIONS (1)
  - Urinary retention [Recovered/Resolved]
